FAERS Safety Report 11866322 (Version 3)
Quarter: 2017Q2

REPORT INFORMATION
  Report Type: Report from Study
  Country: AT (occurrence: AT)
  Receive Date: 20151223
  Receipt Date: 20170623
  Transmission Date: 20170829
  Serious: Yes (Death, Other)
  Sender: FDA-Public Use
  Company Number: AT-ROCHE-718303

PATIENT

DRUGS (3)
  1. BEVACIZUMAB [Suspect]
     Active Substance: BEVACIZUMAB
     Indication: HEPATOCELLULAR CARCINOMA
     Dosage: PRIOR TO THE FIRST CTACE PROCEDURE
     Route: 042
  2. BEVACIZUMAB [Suspect]
     Active Substance: BEVACIZUMAB
     Route: 042
  3. DOXORUBICIN [Suspect]
     Active Substance: DOXORUBICIN
     Indication: HEPATOCELLULAR CARCINOMA
     Dosage: DOSE OF 75, 50, OR 25 MG/M2 ADJUSTED FOR A SERUM BILIRUBIN LEVEL
     Route: 065

REACTIONS (17)
  - Femoral artery aneurysm [Unknown]
  - Ascites [Unknown]
  - Mesenteric vein thrombosis [Unknown]
  - Gastric ulcer haemorrhage [Unknown]
  - Pulmonary oedema [Unknown]
  - Subdiaphragmatic abscess [Unknown]
  - Cardiomegaly [Unknown]
  - Embolism [Unknown]
  - Myocardial infarction [Unknown]
  - Portal vein thrombosis [Unknown]
  - Peripheral artery thrombosis [Unknown]
  - Cholangitis [Unknown]
  - Impaired healing [Unknown]
  - Liver abscess [Unknown]
  - Peripheral artery occlusion [Unknown]
  - Sepsis [Fatal]
  - Hepatic vein thrombosis [Unknown]
